FAERS Safety Report 24186117 (Version 2)
Quarter: 2024Q3

REPORT INFORMATION
  Report Type: Spontaneous
  Country: US (occurrence: US)
  Receive Date: 20240808
  Receipt Date: 20240813
  Transmission Date: 20241016
  Serious: Yes (Other)
  Sender: CIPLA
  Company Number: US-CIPLA LTD.-2024US08206

PATIENT

DRUGS (5)
  1. ATORVASTATIN [Interacting]
     Active Substance: ATORVASTATIN
     Indication: Product used for unknown indication
     Dosage: 20 MILLIGRAM ONCE DAILY FOR 10 MONTHS
     Route: 065
  2. DABRAFENIB\TRAMETINIB [Interacting]
     Active Substance: DABRAFENIB\TRAMETINIB
     Indication: Non-small cell lung cancer stage IV
     Dosage: 150 MILLIGRAM, BID FOR 4 YEARS-DABRAFENIB
     Route: 048
  3. DABRAFENIB\TRAMETINIB [Interacting]
     Active Substance: DABRAFENIB\TRAMETINIB
     Dosage: 2 MILLIGRAM, QD FOR 4 YEARS-TRAMETINIB
     Route: 048
  4. LISINOPRIL [Concomitant]
     Active Substance: LISINOPRIL
     Indication: Product used for unknown indication
     Dosage: 20 MILLIGRAM, QD
     Route: 065
  5. LISINOPRIL [Concomitant]
     Active Substance: LISINOPRIL
     Dosage: 40 MILLIGRAM, QD
     Route: 065

REACTIONS (2)
  - Granulomatous liver disease [Recovered/Resolved]
  - Drug interaction [Recovered/Resolved]

NARRATIVE: CASE EVENT DATE: 20220901
